FAERS Safety Report 6744218-1 (Version None)
Quarter: 2010Q2

REPORT INFORMATION
  Report Type: 
  Country: None (occurrence: None)
  Receive Date: 20100527
  Receipt Date: 20100519
  Transmission Date: 20101027
  Serious: Yes (Death)
  Sender: FDA-Public Use
  Company Number: DE-JNJFOC-20100509885

PATIENT
  Age: 53 Year
  Sex: Female

DRUGS (1)
  1. ITRACONAZOLE [Suspect]
     Indication: PNEUMONIA FUNGAL
     Route: 065

REACTIONS (2)
  - DISEASE PROGRESSION [None]
  - DRUG RESISTANCE [None]
